FAERS Safety Report 15348317 (Version 1)
Quarter: 2018Q3

REPORT INFORMATION
  Report Type: Spontaneous
  Country: US (occurrence: US)
  Receive Date: 20180829
  Receipt Date: 20180829
  Transmission Date: 20181010
  Serious: No
  Sender: FDA-Public Use
  Company Number: None

PATIENT
  Age: 26 Year
  Sex: Female
  Weight: 53.07 kg

DRUGS (5)
  1. MELATONIN HORMONE [Concomitant]
  2. NEXPLANON [Suspect]
     Active Substance: ETONOGESTREL
     Dates: start: 20180108
  3. THORNE VITAMIN B [Concomitant]
  4. HORMONE/VITAMIN D3 [Concomitant]
  5. IBUPROFEN. [Concomitant]
     Active Substance: IBUPROFEN

REACTIONS (2)
  - Muscle spasms [None]
  - Vaginal haemorrhage [None]

NARRATIVE: CASE EVENT DATE: 20180829
